FAERS Safety Report 18215574 (Version 1)
Quarter: 2020Q3

REPORT INFORMATION
  Report Type: Spontaneous
  Country: FR (occurrence: FR)
  Receive Date: 20200901
  Receipt Date: 20200901
  Transmission Date: 20201103
  Serious: Yes (Other)
  Sender: FDA-Public Use
  Company Number: FR-SUN PHARMACEUTICAL INDUSTRIES LTD-2020RR-259227

PATIENT
  Age: 75 Year
  Sex: Male

DRUGS (3)
  1. LEVOFOLINATE CALCIQUE [Suspect]
     Active Substance: LEVOLEUCOVORIN CALCIUM
     Indication: ADENOCARCINOMA OF COLON
     Dosage: 400 MILLIGRAM, IN TOTAL
     Route: 041
     Dates: start: 20200528, end: 20200528
  2. VECTIBIX [Suspect]
     Active Substance: PANITUMUMAB
     Indication: ADENOCARCINOMA OF COLON
     Dosage: 500 MILLIGRAM, IN TOTAL
     Route: 041
     Dates: start: 20200528, end: 20200528
  3. OXALIPLATIN. [Suspect]
     Active Substance: OXALIPLATIN
     Indication: ADENOCARCINOMA OF COLON
     Dosage: 170 MILLIGRAM, IN TOTAL
     Route: 041
     Dates: start: 20200528, end: 20200528

REACTIONS (3)
  - Tremor [Recovered/Resolved]
  - Livedo reticularis [Recovered/Resolved]
  - Pyrexia [Recovered/Resolved]

NARRATIVE: CASE EVENT DATE: 20200528
